FAERS Safety Report 4326765-5 (Version None)
Quarter: 2004Q1

REPORT INFORMATION
  Report Type: 
  Country: None (occurrence: None)
  Receive Date: 20040330
  Receipt Date: 20040330
  Transmission Date: 20041129
  Serious: Yes (Other)
  Sender: FDA-Public Use
  Company Number: None

PATIENT

DRUGS (2)
  1. OMEPRAZOLE [Suspect]
     Indication: GASTROOESOPHAGEAL REFLUX DISEASE
     Dosage: CAPSULE 1 PER DAY ORAL
     Route: 048
     Dates: start: 20040201, end: 20040229
  2. OMEPRAZOLE [Suspect]
     Indication: HYPERCHLORHYDRIA
     Dosage: CAPSULE 1 PER DAY ORAL
     Route: 048
     Dates: start: 20040201, end: 20040229

REACTIONS (2)
  - DRUG INEFFECTIVE [None]
  - PHARMACEUTICAL PRODUCT COMPLAINT [None]
